FAERS Safety Report 4388901-4 (Version None)
Quarter: 2004Q2

REPORT INFORMATION
  Report Type: 
  Country: None (occurrence: None)
  Receive Date: 20040628
  Receipt Date: 20040615
  Transmission Date: 20050107
  Serious: Yes (Hospitalization)
  Sender: FDA-Public Use
  Company Number: 04P-163-0264142-00

PATIENT
  Age: 75 Year
  Sex: Female
  Weight: 58.0604 kg

DRUGS (8)
  1. HUMIRA [Suspect]
     Indication: RHEUMATOID ARTHRITIS
     Dosage: 40 MG, 1 IN 2 WK, SUBCUTANEOUS
     Route: 058
     Dates: start: 20030822, end: 20040101
  2. PREDNISONE [Concomitant]
  3. PAROXETINE HYDROCHLORIDE [Concomitant]
  4. CYCLOBENAZPRINE HYDROCHLORIDE [Concomitant]
  5. DIFLUNISAL [Concomitant]
  6. LORAZEPAM [Concomitant]
  7. FUROSEMIDE [Concomitant]
  8. HYDROCODONE [Concomitant]

REACTIONS (2)
  - OSTEOMYELITIS [None]
  - PNEUMONIA [None]
